FAERS Safety Report 7456074-7 (Version None)
Quarter: 2011Q2

REPORT INFORMATION
  Report Type: 
  Country: None (occurrence: None)
  Receive Date: 20110503
  Receipt Date: 20110429
  Transmission Date: 20111010
  Serious: Yes (Other)
  Sender: FDA-Public Use
  Company Number: US-PFIZER INC-2011093199

PATIENT

DRUGS (1)
  1. LIPITOR [Suspect]
     Dosage: 20 MG, UNK

REACTIONS (2)
  - MYALGIA [None]
  - BLOOD CREATINE PHOSPHOKINASE INCREASED [None]
